FAERS Safety Report 12350361 (Version 1)
Quarter: 2016Q2

REPORT INFORMATION
  Report Type: Spontaneous
  Country: US (occurrence: None)
  Receive Date: 20160509
  Receipt Date: 20160509
  Transmission Date: 20160815
  Serious: Yes (Disabling)
  Sender: FDA-Public Use
  Company Number: None

PATIENT
  Age: 3 Month
  Sex: Female
  Weight: 96.62 kg

DRUGS (3)
  1. LITHIUM CARB [Suspect]
     Active Substance: LITHIUM CARBONATE
     Indication: BIPOLAR DISORDER
     Route: 048
     Dates: start: 20160322
  2. HALOPERIDOL. [Suspect]
     Active Substance: HALOPERIDOL
     Indication: BIPOLAR DISORDER
     Route: 048
  3. VOL-TAB RX TAB TRI [Concomitant]

REACTIONS (4)
  - Confusional state [None]
  - Salivary hypersecretion [None]
  - Tongue movement disturbance [None]
  - Tremor [None]

NARRATIVE: CASE EVENT DATE: 20160502
